FAERS Safety Report 8350418 (Version 2)
Quarter: 2012Q4

REPORT INFORMATION
  Report Type: 
  Country: US (occurrence: US)
  Receive Date: 20120124
  Receipt Date: 20121015
  Transmission Date: 20130627
  Serious: Yes (Hospitalization)
  Sender: FDA-Public Use
  Company Number: US-BAYER-2012-005017

PATIENT
  Age: 23 Year
  Sex: Female
  Weight: 65.76 kg

DRUGS (14)
  1. YASMIN [Suspect]
     Indication: MENSTRUATION IRREGULAR
     Dosage: UNK
     Route: 048
     Dates: start: 200109, end: 20011020
  2. YASMIN [Suspect]
     Indication: MENSTRUATION IRREGULAR
     Dosage: UNK
     Dates: start: 20010828, end: 20011017
  3. YASMIN [Suspect]
     Indication: MENSTRUATION IRREGULAR
  4. IBUPROFEN [Concomitant]
     Indication: BACK PAIN
     Dosage: 600 mg, TID for 7 days then prn
  5. FLEXERIL [Concomitant]
     Dosage: 10 mg, HS
  6. MOTRIN [Concomitant]
  7. ROBAXIN [Concomitant]
  8. XANAX [Concomitant]
     Indication: STRESS
     Dosage: 0.25 mg, UNK
  9. DARVOCET [Concomitant]
     Indication: ANXIETY
  10. DARVOCET [Concomitant]
     Indication: PAIN
  11. DEMEROL [Concomitant]
     Indication: PAIN
     Dosage: 25-50 mg
     Route: 042
  12. RESTORIL [Concomitant]
     Indication: INSOMNIA
     Dosage: 15 mg, UNK
  13. TYLENOL [Concomitant]
     Indication: PAIN
  14. ORTHO TRI CYCLEN [Concomitant]
     Dosage: UNK
     Dates: start: 20010830

REACTIONS (14)
  - Deep vein thrombosis [None]
  - Pelvic venous thrombosis [None]
  - Thrombophlebitis superficial [None]
  - Pain [None]
  - Emotional distress [None]
  - Hypoaesthesia [None]
  - Skin discolouration [None]
  - Oedema peripheral [None]
  - Back pain [None]
  - Pain in extremity [None]
  - Anxiety [None]
  - Stress [None]
  - Fear [None]
  - Injury [None]
